FAERS Safety Report 4845245-1 (Version None)
Quarter: 2005Q4

REPORT INFORMATION
  Report Type: 
  Country: None (occurrence: None)
  Receive Date: 20051125
  Receipt Date: 20051115
  Transmission Date: 20060501
  Serious: Yes (Hospitalization, Other)
  Sender: FDA-Public Use
  Company Number: 2005094600

PATIENT
  Sex: Female
  Weight: 65.7716 kg

DRUGS (8)
  1. DILANTIN KAPSEAL [Suspect]
     Indication: EPILEPSY
     Dosage: 330 MG (2 IN 1 D), ORAL
     Route: 048
     Dates: start: 19640501
  2. DILANTIN KAPSEAL [Suspect]
  3. CELEBREX [Suspect]
     Indication: NECK PAIN
     Dosage: (200 MG), ORAL
     Route: 048
  4. FELDENE [Suspect]
     Indication: ILL-DEFINED DISORDER
  5. PHENOBARBITAL TAB [Suspect]
     Indication: CONVULSION
     Dosage: 30 MG (30 MG, 1 IN 1 D)
     Dates: start: 19640501
  6. PHENOBARBITAL TAB [Suspect]
     Indication: EPILEPSY
     Dosage: 30 MG (30 MG, 1 IN 1 D)
     Dates: start: 19640501
  7. VIOXX [Suspect]
     Indication: NECK PAIN
  8. PREMPRO [Suspect]
     Indication: ILL-DEFINED DISORDER

REACTIONS (21)
  - CONVULSION [None]
  - DRUG DOSE OMISSION [None]
  - DRUG EXPOSURE DURING PREGNANCY [None]
  - DYSPEPSIA [None]
  - EXTRAPYRAMIDAL DISORDER [None]
  - FALL [None]
  - FEAR [None]
  - FOOD ALLERGY [None]
  - GRAND MAL CONVULSION [None]
  - INTERVERTEBRAL DISC DEGENERATION [None]
  - MYOCARDIAL INFARCTION [None]
  - NECK INJURY [None]
  - OBSTRUCTIVE AIRWAYS DISORDER [None]
  - PAIN IN EXTREMITY [None]
  - PHARYNGEAL OEDEMA [None]
  - PREGNANCY [None]
  - RASH [None]
  - TACHYCARDIA [None]
  - THERMAL BURN [None]
  - URTICARIA [None]
  - WEIGHT DECREASED [None]
